FAERS Safety Report 9228282 (Version 1)
Quarter: 2013Q2

REPORT INFORMATION
  Report Type: Spontaneous
  Country: US (occurrence: US)
  Receive Date: 20130412
  Receipt Date: 20130412
  Transmission Date: 20140414
  Serious: Yes (Other)
  Sender: FDA-Public Use
  Company Number: US-PFIZER INC-2013115843

PATIENT
  Age: 32 Year
  Sex: Male
  Weight: 136 kg

DRUGS (5)
  1. LYRICA [Suspect]
     Indication: DIABETIC NEUROPATHY
     Dosage: 100 MG, 3X/DAY
     Route: 048
     Dates: start: 20130405
  2. LIPITOR [Concomitant]
     Indication: BLOOD PRESSURE ABNORMAL
     Dosage: 20 MG, DAILY
  3. ADVIL [Concomitant]
     Indication: HEADACHE
     Dosage: UNK
  4. HYDROCHLOROTHIAZIDE [Concomitant]
     Dosage: UNK MG, 1X/DAY
  5. DIAZEPAM [Concomitant]

REACTIONS (1)
  - Diabetes mellitus [Not Recovered/Not Resolved]
